FAERS Safety Report 18302650 (Version 2)
Quarter: 2020Q4

REPORT INFORMATION
  Report Type: Other
  Country: CA (occurrence: CA)
  Receive Date: 20200923
  Receipt Date: 20201226
  Transmission Date: 20210113
  Serious: Yes (Other)
  Sender: FDA-Public Use
  Company Number: CA-ROCHE-2665968

PATIENT
  Age: 30 Year
  Sex: Female

DRUGS (2)
  1. OCREVUS [Suspect]
     Active Substance: OCRELIZUMAB
     Indication: RELAPSING-REMITTING MULTIPLE SCLEROSIS
     Route: 042
     Dates: start: 201912
  2. OCREVUS [Suspect]
     Active Substance: OCRELIZUMAB
     Dosage: 300 MG AT DAY 0 AND 14, THEN 600 MG EVERY 6 MONTH (CONCENTRATE FOR INTRAVENOUS INFUSION)
     Route: 042
     Dates: start: 20200206

REACTIONS (4)
  - Injection site reaction [Not Recovered/Not Resolved]
  - Infusion related reaction [Recovering/Resolving]
  - Syncope [Unknown]
  - Stress [Unknown]

NARRATIVE: CASE EVENT DATE: 20200820
